FAERS Safety Report 4655012-X (Version None)
Quarter: 2005Q2

REPORT INFORMATION
  Report Type: 
  Country: None (occurrence: None)
  Receive Date: 20050506
  Receipt Date: 20050425
  Transmission Date: 20051028
  Serious: Yes (Hospitalization)
  Sender: FDA-Public Use
  Company Number: US-BRISTOL-MYERS SQUIBB COMPANY-12945705

PATIENT
  Age: 76 Year
  Sex: Male
  Weight: 63 kg

DRUGS (10)
  1. COUMADIN [Suspect]
     Indication: ACUTE MYOCARDIAL INFARCTION
     Dates: end: 20040102
  2. ECOTRIN [Suspect]
     Indication: ACUTE MYOCARDIAL INFARCTION
  3. PLAVIX [Suspect]
     Indication: ACUTE MYOCARDIAL INFARCTION
  4. AMBIEN [Concomitant]
  5. AMIODARONE HCL [Concomitant]
  6. COREG [Concomitant]
     Dates: start: 20031109
  7. COZAAR [Concomitant]
     Dates: start: 20031109
  8. LIPITOR [Concomitant]
     Dates: start: 20031109
  9. PROSCAR [Concomitant]
     Dates: start: 20040101
  10. REMERON [Concomitant]
     Dates: start: 20050101

REACTIONS (2)
  - GASTROINTESTINAL HAEMORRHAGE [None]
  - HAEMORRHOIDS [None]
